FAERS Safety Report 12784018 (Version 1)
Quarter: 2016Q3

REPORT INFORMATION
  Report Type: Spontaneous
  Country: AU (occurrence: AU)
  Receive Date: 20160927
  Receipt Date: 20160927
  Transmission Date: 20161109
  Serious: Yes (Other)
  Sender: FDA-Public Use
  Company Number: AU-GLAXOSMITHKLINE-AU2016GSK140035

PATIENT
  Age: 70 Year
  Sex: Female

DRUGS (1)
  1. NICABATE [Suspect]
     Active Substance: NICOTINE
     Indication: PRODUCT USED FOR UNKNOWN INDICATION
     Dosage: UNK
     Dates: start: 20160920, end: 20160920

REACTIONS (6)
  - Oropharyngeal pain [Unknown]
  - Headache [Recovered/Resolved]
  - Tongue discolouration [Unknown]
  - Burn oral cavity [Not Recovered/Not Resolved]
  - Thermal burn [Recovering/Resolving]
  - Product quality issue [Unknown]

NARRATIVE: CASE EVENT DATE: 20160920
